FAERS Safety Report 18322813 (Version 6)
Quarter: 2020Q4

REPORT INFORMATION
  Report Type: Spontaneous
  Country: US (occurrence: US)
  Receive Date: 20200928
  Receipt Date: 20201104
  Transmission Date: 20210113
  Serious: Yes (Other)
  Sender: FDA-Public Use
  Company Number: US-MYLANLABS-2020M1080780

PATIENT
  Age: 65 Year
  Sex: Male

DRUGS (4)
  1. LOSARTAN. [Concomitant]
     Active Substance: LOSARTAN
     Dosage: UNK
  2. EPINEPHRINE INJECTION USP AUTO-INJECTOR [Suspect]
     Active Substance: EPINEPHRINE
     Indication: IDIOPATHIC ANGIOEDEMA
     Dosage: UNK
     Route: 030
  3. ASPIRIN                            /00002701/ [Concomitant]
     Active Substance: ASPIRIN
     Dosage: UNK
  4. EPIPEN [Suspect]
     Active Substance: EPINEPHRINE
     Indication: IDIOPATHIC ANGIOEDEMA
     Dosage: UNK

REACTIONS (3)
  - Product dose omission issue [Unknown]
  - Device failure [Not Recovered/Not Resolved]
  - Expired product administered [Unknown]

NARRATIVE: CASE EVENT DATE: 20200916
